FAERS Safety Report 9998883 (Version 2)
Quarter: 2014Q2

REPORT INFORMATION
  Report Type: Spontaneous
  Country: US (occurrence: US)
  Receive Date: 20140312
  Receipt Date: 20140506
  Transmission Date: 20141212
  Serious: No
  Sender: FDA-Public Use
  Company Number: US-009507513-1403USA000228

PATIENT
  Age: 17 Year
  Sex: Female
  Weight: 80.27 kg

DRUGS (1)
  1. NEXPLANON [Suspect]
     Indication: PRODUCT USED FOR UNKNOWN INDICATION
     Dosage: 1 UNK, UNK
     Route: 059
     Dates: start: 20140219, end: 20140219

REACTIONS (4)
  - Device difficult to use [Recovered/Resolved]
  - Limb injury [Unknown]
  - Product quality issue [Unknown]
  - Complication of device insertion [Recovered/Resolved]
